FAERS Safety Report 8122202-3 (Version None)
Quarter: 2012Q1

REPORT INFORMATION
  Report Type: 
  Country: None (occurrence: None)
  Receive Date: 20120208
  Receipt Date: 20120131
  Transmission Date: 20120608
  Serious: Yes (Hospitalization)
  Sender: FDA-Public Use
  Company Number: US-BAYER-2011-076198

PATIENT
  Age: 18 Year
  Sex: Female
  Weight: 98 kg

DRUGS (26)
  1. VICODIN [Concomitant]
     Dosage: 10 MG, PRN
     Dates: start: 20100129
  2. YASMIN [Suspect]
     Dosage: UNK
     Dates: start: 20030101, end: 20091001
  3. UNKNOWN DRUG [Concomitant]
     Dosage: 1 G, UNK
     Route: 042
     Dates: start: 20100223
  4. PHENERGAN [Concomitant]
     Route: 054
  5. NEXIUM [Concomitant]
  6. MAGNESIUM SULFATE [Concomitant]
     Dosage: 1 G, UNK
     Route: 042
     Dates: start: 20100203
  7. MIRALAX [Concomitant]
  8. DECADRON [Concomitant]
  9. XANAX [Concomitant]
     Indication: ANXIETY
     Dosage: 1 MG, UNK
  10. LO/OVRAL [Concomitant]
     Indication: CONTRACEPTION
  11. KEFLEX [Concomitant]
  12. VANCOMYCIN [Concomitant]
     Dosage: 1 G, UNK
     Route: 042
     Dates: start: 20100127
  13. EMEND [Concomitant]
     Indication: THERAPEUTIC EMBOLISATION
     Dosage: 125 MG/80 MG
  14. OGESTREL 0.5/50-21 [Concomitant]
     Dosage: 0.3 - 0.03 MG, UNK
     Dates: start: 20100128
  15. COUMADIN [Concomitant]
     Dosage: 1 MG, UNK
  16. COMPAZINE [Concomitant]
  17. PERCOCET [Concomitant]
     Dosage: 5/,325
  18. CISPLATIN [Concomitant]
  19. GRANISETRON [Concomitant]
     Indication: NAUSEA
     Route: 062
  20. MANNITOL [Concomitant]
     Dosage: 25 G, UNK
     Route: 042
     Dates: start: 20100203
  21. PEPCID [Concomitant]
     Dosage: 20 MG, UNK
     Route: 042
     Dates: start: 20100203
  22. YAZ [Suspect]
     Dosage: UNK
     Dates: start: 20030101, end: 20091001
  23. VERSED [Concomitant]
     Dosage: UNK
     Route: 042
     Dates: start: 20100127
  24. NORGESTREL [NORGESTREL] [Concomitant]
     Dosage: 0.3 - 0.03 MG UNK
     Route: 048
     Dates: start: 20091016
  25. FENTANYL CITRATE [Concomitant]
     Dosage: UNK
     Route: 042
     Dates: start: 20100127
  26. ZITHROMAX [Concomitant]

REACTIONS (6)
  - POST-TRAUMATIC STRESS DISORDER [None]
  - PULMONARY EMBOLISM [None]
  - PAIN [None]
  - INJURY [None]
  - DEPRESSION [None]
  - ANXIETY [None]
